FAERS Safety Report 6389857-5 (Version None)
Quarter: 2009Q4

REPORT INFORMATION
  Report Type: 
  Country: None (occurrence: None)
  Receive Date: 20091006
  Receipt Date: 20081024
  Transmission Date: 20100525
  Serious: No
  Sender: FDA-Public Use
  Company Number: US-BRISTOL-MYERS SQUIBB COMPANY-14382584

PATIENT
  Age: 60 Year
  Sex: Female
  Weight: 63 kg

DRUGS (7)
  1. AVAPRO [Suspect]
     Indication: HYPERTENSION
     Dosage: 1DF=150(UNITS NOT SPECIFIED)
  2. PLAVIX [Suspect]
     Indication: CORONARY ARTERIAL STENT INSERTION
     Dates: start: 20070801
  3. METOPROLOL [Concomitant]
  4. NORVASC [Concomitant]
  5. AMBIEN [Concomitant]
  6. ASPIRIN [Concomitant]
  7. ACIPHEX [Concomitant]

REACTIONS (9)
  - AGGRESSION [None]
  - ANGER [None]
  - ASTHENIA [None]
  - CHEST PAIN [None]
  - DEPRESSION [None]
  - DIZZINESS [None]
  - DYSPEPSIA [None]
  - FATIGUE [None]
  - OROPHARYNGEAL PAIN [None]
